FAERS Safety Report 26190865 (Version 1)
Quarter: 2025Q4

REPORT INFORMATION
  Report Type: Spontaneous
  Country: KR (occurrence: KR)
  Receive Date: 20251223
  Receipt Date: 20251223
  Transmission Date: 20260119
  Serious: Yes (Other)
  Sender: Kenvue
  Company Number: KR-KENVUE-20251207651

PATIENT
  Age: 3 Decade
  Weight: 69 kg

DRUGS (1)
  1. TYLENOL 8HR [Suspect]
     Active Substance: ACETAMINOPHEN
     Indication: Thyroid cancer
     Dosage: 1 DOSAGE FORM, 0.33 TIME A DAY ( 1{DF} / 0.33DAY)
     Route: 065

REACTIONS (4)
  - Depressed level of consciousness [Recovered/Resolved]
  - Vomiting [Recovered/Resolved]
  - Nausea [Recovered/Resolved]
  - Dizziness [Recovered/Resolved]
